FAERS Safety Report 8551120 (Version 2)
Quarter: 2013Q2

REPORT INFORMATION
  Report Type: Spontaneous
  Country: US (occurrence: None)
  Receive Date: 20120327
  Receipt Date: 20120709
  Transmission Date: 20140414
  Serious: Yes (Life-Threatening)
  Sender: FDA-Public Use
  Company Number: PHHY2011US28120

PATIENT
  Age: 63 Year
  Sex: Female

DRUGS (2)
  1. GLEEVEC [Suspect]
     Indication: GASTROINTESTINAL STROMAL TUMOUR
     Dosage: 400 MG, BID, ORAL
     Route: 048
     Dates: start: 20100112, end: 20100916
  2. SUTENT (SUNITINIB MALATE) [Concomitant]

REACTIONS (2)
  - NEOPLASM MALIGNANT [None]
  - GASTROINTESTINAL STROMAL TUMOUR [None]
